FAERS Safety Report 4695378-8 (Version None)
Quarter: 2005Q2

REPORT INFORMATION
  Report Type: 
  Country: None (occurrence: None)
  Receive Date: 20050617
  Receipt Date: 20050211
  Transmission Date: 20051028
  Serious: Yes (Death, Hospitalization)
  Sender: FDA-Public Use
  Company Number: 10266

PATIENT
  Age: 58 Year
  Sex: Male

DRUGS (3)
  1. VINCRISTINE [Suspect]
     Dosage: IV
     Route: 042
     Dates: start: 20040709
  2. RITUXIMAB [Suspect]
     Dosage: IV
     Route: 042
     Dates: start: 20040709
  3. CYCLOPHOSPHAMIDE [Suspect]
     Dosage: IV
     Route: 042
     Dates: start: 20040709

REACTIONS (1)
  - DYSPNOEA [None]
